FAERS Safety Report 7020604-X (Version None)
Quarter: 2010Q3

REPORT INFORMATION
  Report Type: 
  Country: None (occurrence: None)
  Receive Date: 20100929
  Receipt Date: 20100927
  Transmission Date: 20110219
  Serious: Yes (Other)
  Sender: FDA-Public Use
  Company Number: A0853976A

PATIENT
  Sex: Female

DRUGS (2)
  1. TYKERB [Suspect]
     Indication: BREAST CANCER
     Dosage: 1250MG PER DAY
     Route: 048
     Dates: start: 20100331, end: 20100927
  2. XELODA [Suspect]
     Indication: BREAST CANCER
     Route: 065

REACTIONS (5)
  - ACNE [None]
  - BREAST CANCER METASTATIC [None]
  - DIARRHOEA [None]
  - ERYTHEMA [None]
  - NASAL OEDEMA [None]
